FAERS Safety Report 10512883 (Version 1)
Quarter: 2014Q4

REPORT INFORMATION
  Report Type: Spontaneous
  Country: FR (occurrence: FR)
  Receive Date: 20141013
  Receipt Date: 20141013
  Transmission Date: 20150528
  Serious: Yes (Hospitalization)
  Sender: FDA-Public Use
  Company Number: FR-AUROBINDO-AUR-APL-2014-10741

PATIENT
  Age: 67 Year
  Sex: Female

DRUGS (3)
  1. VANCOMYCIN MYLAN [Suspect]
     Active Substance: VANCOMYCIN
     Indication: PRODUCT USED FOR UNKNOWN INDICATION
     Dosage: 3 G, ONCE A DAY
     Route: 042
     Dates: start: 20140901, end: 20140913
  2. FLUCONAZOLE ARROW [Suspect]
     Active Substance: FLUCONAZOLE
     Indication: PRODUCT USED FOR UNKNOWN INDICATION
     Dosage: 100 MG, ONCE A DAY
     Route: 048
     Dates: start: 20140910, end: 20140912
  3. PIPERACILLINE / TAZOBACTAM MYLAN [Suspect]
     Active Substance: PIPERACILLIN SODIUM\TAZOBACTAM SODIUM
     Indication: PRODUCT USED FOR UNKNOWN INDICATION
     Dosage: 4 G, 3 TIMES A DAY
     Route: 042
     Dates: start: 20140803, end: 20140901

REACTIONS (4)
  - Hyperthermia [Recovering/Resolving]
  - Toxic skin eruption [Recovering/Resolving]
  - Rash [Recovering/Resolving]
  - Pruritus [Recovering/Resolving]

NARRATIVE: CASE EVENT DATE: 20140912
